FAERS Safety Report 7138694-2 (Version None)
Quarter: 2010Q4

REPORT INFORMATION
  Report Type: 
  Country: None (occurrence: None)
  Receive Date: 20101206
  Receipt Date: 20101127
  Transmission Date: 20110411
  Serious: Yes (Hospitalization)
  Sender: FDA-Public Use
  Company Number: GB-GILEAD-GB-CVT-100161

PATIENT
  Age: 73 Year
  Sex: Male

DRUGS (9)
  1. RANEXA [Suspect]
     Indication: ANGINA PECTORIS
     Route: 048
     Dates: start: 20100212, end: 20100301
  2. LANSOPRAZOLE [Suspect]
     Dates: start: 20100212, end: 20100310
  3. IMDUR [Concomitant]
     Indication: ANGINA PECTORIS
     Dates: start: 20080101
  4. PERSANTINE [Concomitant]
     Indication: CEREBROVASCULAR ACCIDENT
  5. NICORANDIL [Concomitant]
     Indication: ANGINA PECTORIS
  6. BISOPROLOL                         /00802601/ [Concomitant]
     Indication: ANGINA PECTORIS
  7. FUROSEMIDE                         /00032601/ [Concomitant]
     Indication: LEFT VENTRICULAR FAILURE
  8. LISINOPRIL                         /00894001/ [Concomitant]
     Indication: HYPERTENSION
  9. NOVOMIX /01475801/ [Concomitant]
     Indication: DIABETES MELLITUS

REACTIONS (4)
  - BLOOD ALKALINE PHOSPHATASE INCREASED [None]
  - LIVER FUNCTION TEST ABNORMAL [None]
  - MALAISE [None]
  - VASCULITIC RASH [None]
